FAERS Safety Report 9712038 (Version 1)
Quarter: 2013Q4

REPORT INFORMATION
  Report Type: Spontaneous
  Country: US (occurrence: None)
  Receive Date: 20131125
  Receipt Date: 20131125
  Transmission Date: 20140711
  Serious: Yes (Other)
  Sender: FDA-Public Use
  Company Number: None

PATIENT
  Age: 39 Year
  Sex: Female
  Weight: 92.99 kg

DRUGS (2)
  1. BUPROPION XL [Suspect]
     Indication: BIPOLAR I DISORDER
     Route: 048
     Dates: start: 20111101, end: 20131124
  2. BUPROPION XL [Suspect]
     Indication: BIPOLAR I DISORDER
     Route: 048
     Dates: start: 20111101, end: 20131124

REACTIONS (4)
  - Affective disorder [None]
  - Product substitution issue [None]
  - Product quality issue [None]
  - Drug ineffective [None]
